FAERS Safety Report 9571860 (Version 1)
Quarter: 2013Q3

REPORT INFORMATION
  Report Type: Spontaneous
  Country: US (occurrence: None)
  Receive Date: 20130930
  Receipt Date: 20130930
  Transmission Date: 20140515
  Serious: Yes (Hospitalization)
  Sender: FDA-Public Use
  Company Number: None

PATIENT
  Age: 29 Year
  Sex: Female
  Weight: 78.2 kg

DRUGS (5)
  1. TECFIDERA [Suspect]
     Indication: MULTIPLE SCLEROSIS
     Dosage: 1 TABLET, BID, ORAL
     Route: 048
  2. TOPAMAX 50 MG PO BID [Concomitant]
  3. GLUCOSAMINE [Concomitant]
  4. CHOLECALCIFEROL (1000 UNITS) 2TABS PO BID [Concomitant]
  5. ORTHO-MICRONOR 0.35 MG PO DAILY [Concomitant]

REACTIONS (4)
  - Abdominal pain upper [None]
  - Nausea [None]
  - Vomiting [None]
  - Pyrexia [None]
